FAERS Safety Report 16868237 (Version 4)
Quarter: 2020Q1

REPORT INFORMATION
  Report Type: Spontaneous
  Country: US (occurrence: US)
  Receive Date: 20190930
  Receipt Date: 20200311
  Transmission Date: 20200409
  Serious: Yes (Hospitalization, Other)
  Sender: FDA-Public Use
  Company Number: US-PFIZER INC-2019416725

PATIENT
  Age: 76 Year
  Sex: Female

DRUGS (8)
  1. SULFASALAZINE. [Suspect]
     Active Substance: SULFASALAZINE
     Indication: RHEUMATOID ARTHRITIS
     Dosage: 500 MG, 2X/DAY
     Route: 048
     Dates: start: 20130828, end: 20130909
  2. ASPIRIN (E.C.) [Concomitant]
     Active Substance: ASPIRIN
     Indication: ARTHRITIS
     Dosage: 81 MG, 1X/DAY (EVERY NIGHT AT BED TIME)
     Route: 048
     Dates: start: 20130923, end: 20140414
  3. FISH OIL [Concomitant]
     Active Substance: FISH OIL
     Dosage: 1 DF, 2X/DAY (TAKE 1 CAP BY MOUTH TWO TIMES DAILY)
     Route: 048
     Dates: end: 20160801
  4. FERROUS FUMARATE [Concomitant]
     Active Substance: FERROUS FUMARATE
     Dosage: 1 DF, 1X/DAY (1 TAB BY MOUTH ONCE DAILY)
     Route: 048
     Dates: end: 20160505
  5. ASPIRIN (E.C.) [Concomitant]
     Active Substance: ASPIRIN
     Indication: ATRIAL FIBRILLATION
  6. SULFASALAZINE. [Suspect]
     Active Substance: SULFASALAZINE
     Dosage: 500 MG, 2X/DAY
     Route: 048
     Dates: start: 20130920, end: 20130921
  7. CITRACAL + D [Concomitant]
     Active Substance: CALCIUM CITRATE\VITAMIN D
     Dosage: 2 DF, 2X/DAY (315-200 MG), 2 TABS BY MOUTH TWO TIMES DAILY WITH MEALS
     Route: 048
     Dates: end: 20151002
  8. METHYLSULFONYLMETHANE [Concomitant]
     Active Substance: DIMETHYL SULFONE
     Indication: ARTHRITIS
     Dosage: 1 DF, 2X/DAY (1 CAP BY MOUTH TWO TIMES DAILY)
     Route: 048
     Dates: end: 20141211

REACTIONS (12)
  - Sepsis [Recovering/Resolving]
  - Tachycardia [Unknown]
  - Atrial fibrillation [Recovered/Resolved with Sequelae]
  - Pyrexia [Recovering/Resolving]
  - Back pain [Recovering/Resolving]
  - Hypotension [Recovering/Resolving]
  - Leukocytosis [Recovering/Resolving]
  - Chills [Recovering/Resolving]
  - Drug hypersensitivity [Unknown]
  - Hyponatraemia [Unknown]
  - Arthralgia [Unknown]
  - Hypomagnesaemia [Unknown]

NARRATIVE: CASE EVENT DATE: 20130921
